FAERS Safety Report 8093241-6 (Version None)
Quarter: 2012Q1

REPORT INFORMATION
  Report Type: 
  Country: None (occurrence: None)
  Receive Date: 20120128
  Receipt Date: 20111010
  Transmission Date: 20120608
  Serious: Yes (Other)
  Sender: FDA-Public Use
  Company Number: US-ABBOTT-11P-163-0727083-00

PATIENT
  Age: 58 Year
  Sex: Male

DRUGS (7)
  1. MULTI-VITAMIN [Concomitant]
     Indication: PRODUCT USED FOR UNKNOWN INDICATION
     Dosage: DAILY
  2. LOVASTATIN [Concomitant]
     Indication: BLOOD CHOLESTEROL
  3. UNKNOWN DIABETES MEDICATION [Concomitant]
     Indication: PRODUCT USED FOR UNKNOWN INDICATION
  4. UNKNOWN CHOLESTEROL MEDICATION [Concomitant]
     Indication: PRODUCT USED FOR UNKNOWN INDICATION
  5. HUMIRA [Suspect]
     Indication: PSORIATIC ARTHROPATHY
     Dates: start: 20010101, end: 20110615
  6. HUMIRA [Suspect]
     Dates: start: 20110630
  7. UNKNOWN OINTMENT [Concomitant]
     Indication: PSORIASIS

REACTIONS (6)
  - DRUG INEFFECTIVE [None]
  - PSORIASIS [None]
  - DIABETES MELLITUS [None]
  - BLOOD CHOLESTEROL INCREASED [None]
  - COLON CANCER [None]
  - STRESS [None]
